FAERS Safety Report 8978227 (Version 1)
Quarter: 2012Q4

REPORT INFORMATION
  Report Type: 
  Country: US (occurrence: US)
  Receive Date: 20121221
  Receipt Date: 20121221
  Transmission Date: 20130627
  Serious: Yes (Hospitalization)
  Sender: FDA-Public Use
  Company Number: US-PFIZER INC-2012320654

PATIENT
  Sex: Male

DRUGS (7)
  1. SUTENT [Suspect]
     Dosage: 50 mg, daily
  2. SUTENT [Suspect]
     Dosage: 25 mg, daily
  3. PRADAXA [Concomitant]
     Indication: HEART RATE ABNORMAL
  4. NAPROSYN [Concomitant]
  5. VICODIN [Concomitant]
  6. METOPROLOL [Concomitant]
  7. MAGIC MOUTHWASH [Concomitant]

REACTIONS (7)
  - Stomatitis [Unknown]
  - Dysgeusia [Unknown]
  - Heart rate irregular [Unknown]
  - Rash [Unknown]
  - Pain in jaw [Unknown]
  - Palmar-plantar erythrodysaesthesia syndrome [Unknown]
  - Diarrhoea [Unknown]
